FAERS Safety Report 22186991 (Version 1)
Quarter: 2023Q2

REPORT INFORMATION
  Report Type: Report from Study
  Country: EG (occurrence: EG)
  Receive Date: 20230407
  Receipt Date: 20230407
  Transmission Date: 20230722
  Serious: Yes (Life-Threatening, Other)
  Sender: FDA-Public Use
  Company Number: EG-002147023-NVSC2023EG050250

PATIENT
  Age: 63 Year
  Sex: Female

DRUGS (21)
  1. KISQALI [Suspect]
     Active Substance: RIBOCICLIB
     Indication: Breast cancer metastatic
     Dosage: 3 DOSAGE FORM, QD (3 TABLETS ONCE DAILY FOR 21 DAYS AND 1 WEEK OFF THEN)
     Route: 048
     Dates: start: 20220317
  2. KISQALI [Suspect]
     Active Substance: RIBOCICLIB
     Indication: Bone cancer metastatic
     Dosage: 2 DOSAGE FORM, QD (FOR 21 DAYS AND 1 WEEK OFF DUE TO CBC PROBLEM)
     Route: 048
     Dates: start: 202209, end: 202212
  3. KISQALI [Suspect]
     Active Substance: RIBOCICLIB
     Indication: Lung cancer metastatic
  4. KISQALI [Suspect]
     Active Substance: RIBOCICLIB
     Indication: Metastatic lymphoma
  5. AFINITOR [Suspect]
     Active Substance: EVEROLIMUS
     Indication: Breast cancer metastatic
     Dosage: 1 DOSAGE FORM, QD
     Route: 048
     Dates: start: 202301
  6. AFINITOR [Suspect]
     Active Substance: EVEROLIMUS
     Indication: Bone cancer metastatic
  7. AFINITOR [Suspect]
     Active Substance: EVEROLIMUS
     Indication: Lung cancer metastatic
  8. AFINITOR [Suspect]
     Active Substance: EVEROLIMUS
     Indication: Metastatic lymphoma
  9. AROMASIN [Concomitant]
     Active Substance: EXEMESTANE
     Indication: Neoplasm malignant
     Dosage: UNK
     Route: 065
  10. FASLODEX [Concomitant]
     Active Substance: FULVESTRANT
     Indication: Neoplasm malignant
     Dosage: UNK
     Route: 065
  11. ARIMIDEX [Concomitant]
     Active Substance: ANASTROZOLE
     Indication: Neoplasm malignant
     Dosage: UNK
     Route: 065
  12. NOLVADEX [Concomitant]
     Active Substance: TAMOXIFEN CITRATE
     Indication: Neoplasm malignant
     Dosage: UNK
     Route: 065
  13. HERBALS [Concomitant]
     Active Substance: HERBALS
     Indication: Gallbladder disorder
     Dosage: UNK, QD (ONCE DAILY AT MORNING)
     Route: 065
     Dates: start: 202203
  14. CONCOR AMLO [Concomitant]
     Indication: Hypertension
     Dosage: UNK, QD (ONCE DAILY IN MORNING)
     Route: 065
     Dates: start: 2010
  15. REBAMIPIDE [Concomitant]
     Active Substance: REBAMIPIDE
     Indication: Gastrointestinal disorder
     Dosage: UNK (BEFORE MEAL)
     Route: 065
     Dates: start: 202203
  16. COLONA [Concomitant]
     Indication: Product used for unknown indication
     Dosage: UNK (AFTER MEALS)
     Route: 065
     Dates: start: 202203
  17. LEVOFLOXACIN [Concomitant]
     Active Substance: LEVOFLOXACIN
     Indication: Antibiotic therapy
     Dosage: UNK (SHE TOOK THEM SEVERAL TIMES UPON REPORTER^S WORDS)
     Route: 065
  18. DOLIPRANE [Concomitant]
     Active Substance: ACETAMINOPHEN
     Indication: Analgesic therapy
     Dosage: UNK
     Route: 065
     Dates: start: 202203
  19. VOLTAREN [Concomitant]
     Active Substance: DICLOFENAC SODIUM
     Indication: Analgesic therapy
     Dosage: UNK
     Route: 065
     Dates: start: 202203
  20. DURAGESIC [Concomitant]
     Active Substance: FENTANYL
     Indication: Analgesic therapy
     Dosage: UNK
     Route: 065
     Dates: start: 202203
  21. TAMOXIFEN [Concomitant]
     Active Substance: TAMOXIFEN
     Indication: Neoplasm malignant
     Dosage: UNK(BUT SHE DIDN^T MENTION WHICH PHARMACEUTICAL COMPANY)
     Route: 065

REACTIONS (12)
  - Suicide attempt [Recovering/Resolving]
  - Depression [Recovering/Resolving]
  - Breast cancer metastatic [Recovering/Resolving]
  - Bone cancer metastatic [Recovering/Resolving]
  - Lung cancer metastatic [Recovering/Resolving]
  - Metastatic lymphoma [Recovering/Resolving]
  - Drug ineffective [Recovering/Resolving]
  - Immune system disorder [Recovered/Resolved]
  - Infection [Not Recovered/Not Resolved]
  - COVID-19 [Recovered/Resolved]
  - Diarrhoea [Not Recovered/Not Resolved]
  - Vomiting [Not Recovered/Not Resolved]

NARRATIVE: CASE EVENT DATE: 20220301
